FAERS Safety Report 4587761-6 (Version None)
Quarter: 2005Q1

REPORT INFORMATION
  Report Type: 
  Country: None (occurrence: None)
  Receive Date: 20050218
  Receipt Date: 20050125
  Transmission Date: 20050727
  Serious: Yes (Other)
  Sender: FDA-Public Use
  Company Number: US-AMGEN-US109092

PATIENT
  Sex: Male
  Weight: 72 kg

DRUGS (8)
  1. EPOGEN [Suspect]
     Indication: DIALYSIS
     Route: 058
     Dates: start: 20020202, end: 20041227
  2. NEURONTIN [Suspect]
     Dates: start: 20020101
  3. COUMADIN [Concomitant]
     Dates: start: 20020101
  4. COLCHICINE [Concomitant]
     Dates: start: 19990101
  5. AMIODARONE HCL [Concomitant]
  6. DILTIAZEM [Concomitant]
     Dates: start: 20020101
  7. HECTORAL [Concomitant]
     Dates: start: 20041101
  8. COREG [Concomitant]
     Dates: start: 20020202, end: 20041101

REACTIONS (8)
  - ANISOCYTOSIS [None]
  - BLOOD ALBUMIN DECREASED [None]
  - BONE MARROW DEPRESSION [None]
  - ELLIPTOCYTOSIS [None]
  - IRON DEFICIENCY [None]
  - MALNUTRITION [None]
  - THERAPEUTIC RESPONSE DECREASED [None]
  - THROMBOCYTOPENIA [None]
